FAERS Safety Report 17352584 (Version 2)
Quarter: 2020Q4

REPORT INFORMATION
  Report Type: Spontaneous
  Country: US (occurrence: US)
  Receive Date: 20200131
  Receipt Date: 20201027
  Transmission Date: 20210113
  Serious: No
  Sender: FDA-Public Use
  Company Number: US-CELGENEUS-USA-20200110086

PATIENT
  Sex: Male
  Weight: 93.52 kg

DRUGS (1)
  1. REVLIMID [Suspect]
     Active Substance: LENALIDOMIDE
     Indication: PLASMA CELL MYELOMA
     Dosage: 15 MILLIGRAMS
     Route: 048
     Dates: start: 20191021

REACTIONS (2)
  - Tinnitus [Not Recovered/Not Resolved]
  - Rhinorrhoea [Not Recovered/Not Resolved]
